FAERS Safety Report 18953696 (Version 1)
Quarter: 2021Q1

REPORT INFORMATION
  Report Type: Spontaneous
  Country: US (occurrence: US)
  Receive Date: 20210301
  Receipt Date: 20210301
  Transmission Date: 20210420
  Serious: Yes (Other)
  Sender: FDA-Public Use
  Company Number: None

PATIENT
  Age: 67 Year
  Sex: Male
  Weight: 96.1 kg

DRUGS (6)
  1. ATENOLOL. [Concomitant]
     Active Substance: ATENOLOL
  2. FUROSEMIDE. [Concomitant]
     Active Substance: FUROSEMIDE
  3. CLONIDINE. [Concomitant]
     Active Substance: CLONIDINE
  4. BAMLANIVIMAB. [Suspect]
     Active Substance: BAMLANIVIMAB
     Indication: COVID-19
     Dosage: ?          OTHER FREQUENCY:ONCE;?
     Route: 042
     Dates: start: 20210104, end: 20210124
  5. FLEXERIL [Concomitant]
     Active Substance: CYCLOBENZAPRINE HYDROCHLORIDE
  6. SINGULAIR [Concomitant]
     Active Substance: MONTELUKAST SODIUM

REACTIONS (2)
  - Oxygen saturation decreased [None]
  - Hyperhidrosis [None]

NARRATIVE: CASE EVENT DATE: 20210105
